FAERS Safety Report 25857130 (Version 1)
Quarter: 2025Q3

REPORT INFORMATION
  Report Type: Spontaneous
  Country: GB (occurrence: GB)
  Receive Date: 20250929
  Receipt Date: 20250929
  Transmission Date: 20251021
  Serious: Yes (Hospitalization, Other)
  Sender: CELLTRION
  Company Number: GB-CELLTRION INC.-2025GB021795

PATIENT

DRUGS (2)
  1. YUFLYMA [Suspect]
     Active Substance: ADALIMUMAB-AATY
     Indication: Rheumatoid arthritis
     Dosage: YUFLYMA 40MG FOR INJECTION PENS
     Route: 058
     Dates: start: 202406
  2. YUFLYMA [Suspect]
     Active Substance: ADALIMUMAB-AATY
     Dosage: YUFLYMA 40MG FOR INJECTION PENS INJECT ONE PRE-FILLED PEN EVERY TWO WEEKS
     Route: 058
     Dates: start: 202405

REACTIONS (5)
  - Hospitalisation [Unknown]
  - COVID-19 [Unknown]
  - Urinary tract infection [Unknown]
  - Post procedural infection [Unknown]
  - Intentional dose omission [Unknown]
